FAERS Safety Report 20409535 (Version 2)
Quarter: 2022Q1

REPORT INFORMATION
  Report Type: Spontaneous
  Country: US (occurrence: US)
  Receive Date: 20220201
  Receipt Date: 20220203
  Transmission Date: 20220424
  Serious: Yes (Hospitalization)
  Sender: FDA-Public Use
  Company Number: US-GLAXOSMITHKLINE-US2022AMR015814

PATIENT
  Age: 67 Year
  Sex: Male
  Weight: 70.31 kg

DRUGS (2)
  1. SOTROVIMAB [Suspect]
     Active Substance: SOTROVIMAB
     Indication: COVID-19
     Dosage: 500 MG
     Dates: start: 20220106
  2. MELOXICAM [Concomitant]
     Active Substance: MELOXICAM
     Indication: Intervertebral disc degeneration
     Dosage: UNK

REACTIONS (8)
  - Dehydration [Unknown]
  - Cold sweat [Not Recovered/Not Resolved]
  - Chills [Not Recovered/Not Resolved]
  - Nausea [Not Recovered/Not Resolved]
  - Adverse drug reaction [Unknown]
  - Weight decreased [Not Recovered/Not Resolved]
  - Insomnia [Not Recovered/Not Resolved]
  - Body temperature increased [Unknown]

NARRATIVE: CASE EVENT DATE: 20220101
